FAERS Safety Report 7244110-2 (Version None)
Quarter: 2011Q1

REPORT INFORMATION
  Report Type: 
  Country: None (occurrence: None)
  Receive Date: 20110125
  Receipt Date: 20110121
  Transmission Date: 20110831
  Serious: Yes (Hospitalization)
  Sender: FDA-Public Use
  Company Number: FR-EISAI INC-E2080-00368-SPO-FR

PATIENT
  Age: 32 Year
  Sex: Female

DRUGS (5)
  1. INOVELON [Suspect]
     Route: 048
     Dates: start: 20100826, end: 20100906
  2. INOVELON [Suspect]
     Route: 048
     Dates: start: 20100907, end: 20110119
  3. TOPIRAMATE [Concomitant]
     Dosage: DOSE INCREASED
     Route: 048
  4. TOPIRAMATE [Concomitant]
     Dosage: UNKNOWN
     Route: 048
  5. INOVELON [Suspect]
     Indication: EPILEPSY
     Route: 048
     Dates: start: 20100701, end: 20100825

REACTIONS (5)
  - EPILEPSY [None]
  - ENCEPHALOPATHY [None]
  - HEADACHE [None]
  - DECREASED APPETITE [None]
  - PYREXIA [None]
